FAERS Safety Report 4512482-5 (Version None)
Quarter: 2004Q4

REPORT INFORMATION
  Report Type: 
  Country: None (occurrence: None)
  Receive Date: 20041124
  Receipt Date: 20041110
  Transmission Date: 20050328
  Serious: Yes (Hospitalization, Other)
  Sender: FDA-Public Use
  Company Number: USA041183724

PATIENT
  Age: 92 Year
  Sex: Female

DRUGS (11)
  1. FORTEO [Suspect]
     Indication: OSTEOARTHRITIS
     Dates: start: 20040501
  2. MULTI-VITAMIN [Concomitant]
  3. SOLATOL (SOTALOL HYDROCHLORIDE) [Concomitant]
  4. EASPIRIN (ACETYLSALICYLIC ACID) [Concomitant]
  5. PRILOSEC (OMEPRAZOLE RATIOPHARM) [Concomitant]
  6. CETAPRIL (ALACEPRIL) [Concomitant]
  7. LASIX [Concomitant]
  8. FLEXERIL [Concomitant]
  9. TUMS (CALCIUM CARBONATE) [Concomitant]
  10. TYLENOL (CAPLET) [Concomitant]
  11. PLAVIX [Concomitant]

REACTIONS (4)
  - ARTERIAL OCCLUSIVE DISEASE [None]
  - CHEST PAIN [None]
  - PHARMACEUTICAL PRODUCT COMPLAINT [None]
  - STENT PLACEMENT [None]
